FAERS Safety Report 9222446 (Version 1)
Quarter: 2013Q2

REPORT INFORMATION
  Report Type: Spontaneous
  Country: TR (occurrence: TR)
  Receive Date: 20130410
  Receipt Date: 20130410
  Transmission Date: 20140414
  Serious: Yes (Other)
  Sender: FDA-Public Use
  Company Number: TR-SANOFI-AVENTIS-2013SA035743

PATIENT
  Age: 31 Year
  Sex: Male

DRUGS (2)
  1. LEVOTHYROXINE [Suspect]
     Indication: AUTOIMMUNE THYROIDITIS
     Route: 065
  2. RIFAMPICIN [Interacting]
     Indication: PROPHYLAXIS
     Route: 065

REACTIONS (4)
  - Hypothyroidism [Recovered/Resolved]
  - Blood thyroid stimulating hormone increased [Recovered/Resolved]
  - Drug interaction [Unknown]
  - Thrombocytosis [Recovered/Resolved]
